FAERS Safety Report 24633649 (Version 1)
Quarter: 2024Q4

REPORT INFORMATION
  Report Type: Spontaneous
  Country: US (occurrence: US)
  Receive Date: 20241118
  Receipt Date: 20241118
  Transmission Date: 20250115
  Serious: No
  Sender: SANOFI AVENTIS
  Company Number: US-SA-2024SA330190

PATIENT
  Age: 13 Year

DRUGS (8)
  1. TZIELD [Suspect]
     Active Substance: TEPLIZUMAB-MZWV
     Indication: Diabetes prophylaxis
     Dosage: 96 UG, 1X
     Route: 042
     Dates: start: 20240826, end: 20240826
  2. TZIELD [Suspect]
     Active Substance: TEPLIZUMAB-MZWV
     Dosage: 190 UG, 1X
     Route: 042
     Dates: start: 20240827, end: 20240827
  3. TZIELD [Suspect]
     Active Substance: TEPLIZUMAB-MZWV
     Dosage: 370 UG, 1X
     Route: 042
     Dates: start: 20241028, end: 20241028
  4. TZIELD [Suspect]
     Active Substance: TEPLIZUMAB-MZWV
     Dosage: 740 UG, 1X
     Route: 042
     Dates: start: 20240829, end: 20240829
  5. TZIELD [Suspect]
     Active Substance: TEPLIZUMAB-MZWV
     Dosage: 1500 MCG
     Route: 042
     Dates: start: 20240830, end: 20240908
  6. IBUPROFEN [Concomitant]
     Active Substance: IBUPROFEN
     Indication: Premedication
     Dosage: 400 MG, Q6H AS NEEDED
     Dates: start: 20240826, end: 20240908
  7. DIPHENHYDRAMINE [Concomitant]
     Active Substance: DIPHENHYDRAMINE
     Indication: Premedication
     Dosage: 50 MG, EVERY 6-8 HOURS AS NEEDED
     Dates: start: 20240826, end: 20240908
  8. ONDANSETRON [Concomitant]
     Active Substance: ONDANSETRON
     Dosage: 9 MG, Q8H
     Dates: start: 20240826, end: 20240908

REACTIONS (3)
  - Chills [Unknown]
  - Pallor [Unknown]
  - Pyrexia [Unknown]

NARRATIVE: CASE EVENT DATE: 20240827
